FAERS Safety Report 5640610-7 (Version None)
Quarter: 2008Q1

REPORT INFORMATION
  Report Type: 
  Country: None (occurrence: None)
  Receive Date: 20080227
  Receipt Date: 20080218
  Transmission Date: 20080703
  Serious: Yes (Hospitalization)
  Sender: FDA-Public Use
  Company Number: PHHO2008DE02591

PATIENT
  Sex: Male
  Weight: 78 kg

DRUGS (4)
  1. RAD [Suspect]
     Indication: LUNG TRANSPLANT
     Dosage: UNKNOWN
     Route: 048
     Dates: start: 20060103
  2. CYCLOSPORINE [Suspect]
     Indication: LUNG TRANSPLANT
     Dates: start: 20051204
  3. COTRIM [Concomitant]
  4. ACYCLOVIR [Concomitant]

REACTIONS (4)
  - HYPOCHROMIC ANAEMIA [None]
  - IRON DEFICIENCY ANAEMIA [None]
  - RENAL FAILURE CHRONIC [None]
  - RENAL VESSEL DISORDER [None]
